FAERS Safety Report 21183526 (Version 1)
Quarter: 2022Q3

REPORT INFORMATION
  Report Type: Spontaneous
  Country: US (occurrence: US)
  Receive Date: 20220808
  Receipt Date: 20220808
  Transmission Date: 20221027
  Serious: No
  Sender: FDA-Public Use
  Company Number: US-JNJFOC-20220758124

PATIENT
  Age: 51 Year
  Sex: Female
  Weight: 52.210 kg

DRUGS (4)
  1. SPRAVATO [Suspect]
     Active Substance: ESKETAMINE
     Indication: Depression
     Dosage: 3 VIALS
     Dates: start: 202204
  2. SPRAVATO [Suspect]
     Active Substance: ESKETAMINE
     Indication: Generalised anxiety disorder
     Dosage: 3 VIALS
  3. SPRAVATO [Suspect]
     Active Substance: ESKETAMINE
     Dosage: TAKING DOSE EVERY OTHER WEEK
  4. XANAX [Concomitant]
     Active Substance: ALPRAZOLAM

REACTIONS (3)
  - Therapeutic response unexpected [Unknown]
  - Product dose omission issue [Unknown]
  - Off label use [Unknown]

NARRATIVE: CASE EVENT DATE: 20220101
